FAERS Safety Report 5195941-4 (Version None)
Quarter: 2007Q1

REPORT INFORMATION
  Report Type: 
  Country: None (occurrence: None)
  Receive Date: 20070102
  Receipt Date: 20061220
  Transmission Date: 20070707
  Serious: Yes (Hospitalization)
  Sender: FDA-Public Use
  Company Number: FR-ELI_LILLY_AND_COMPANY-FR200612003672

PATIENT
  Age: 65 Year
  Sex: Female

DRUGS (4)
  1. FORTEO [Suspect]
     Indication: OSTEOPOROSIS
     Dosage: 20 UG, DAILY (1/D)
     Route: 058
     Dates: start: 20060130
  2. CELIPROLOL [Concomitant]
     Indication: HYPERTENSION
  3. FENOFIBRATE [Concomitant]
     Indication: HYPERCHOLESTEROLAEMIA
  4. PLAVIX [Concomitant]
     Indication: CARDIAC DISORDER

REACTIONS (3)
  - BREAST CANCER [None]
  - DYSURIA [None]
  - MICTURITION URGENCY [None]
